FAERS Safety Report 12390365 (Version 2)
Quarter: 2016Q3

REPORT INFORMATION
  Report Type: Report from Study
  Country: US (occurrence: US)
  Receive Date: 20160520
  Receipt Date: 20160704
  Transmission Date: 20161109
  Serious: Yes (Other)
  Sender: FDA-Public Use
  Company Number: US-JNJFOC-20160518041

PATIENT
  Age: 60 Year
  Sex: Male

DRUGS (2)
  1. IMBRUVICA [Suspect]
     Active Substance: IBRUTINIB
     Indication: ACUTE LYMPHOCYTIC LEUKAEMIA
     Route: 048
     Dates: start: 201301, end: 20160418
  2. PREDNISONE. [Concomitant]
     Active Substance: PREDNISONE
     Dates: start: 20160503, end: 20160505

REACTIONS (3)
  - Off label use [Recovered/Resolved]
  - Pneumonitis [Recovering/Resolving]
  - Product use issue [Recovered/Resolved]

NARRATIVE: CASE EVENT DATE: 201301
